FAERS Safety Report 26208921 (Version 1)
Quarter: 2025Q4

REPORT INFORMATION
  Report Type: Spontaneous
  Country: US (occurrence: None)
  Receive Date: 20251226
  Receipt Date: 20251226
  Transmission Date: 20260118
  Serious: Yes (Death)
  Sender: FDA-CTU
  Company Number: None

PATIENT
  Age: 75 Year
  Sex: Female

DRUGS (6)
  1. POMALYST [Suspect]
     Active Substance: POMALIDOMIDE
     Indication: Plasma cell myeloma
     Dosage: 1 MG AILY FOR 21 DAYS ON, 7 DAYS OFF ORAL
     Route: 048
     Dates: start: 20250729
  2. VITAMIN E 1000IU CAPSULES N/M [Concomitant]
  3. VITAMIN B12 100MCG TABLETS [Concomitant]
  4. EMPLICITI 300MG INJ 1 VIAL [Concomitant]
  5. CLOPIDOGREL [Concomitant]
     Active Substance: CLOPIDOGREL BISULFATE
  6. ASPIRIN 81MG [Concomitant]
     Active Substance: ASPIRIN

REACTIONS (1)
  - Death [None]

NARRATIVE: CASE EVENT DATE: 20251201
